FAERS Safety Report 18406578 (Version 2)
Quarter: 2020Q4

REPORT INFORMATION
  Report Type: Spontaneous
  Country: IT (occurrence: IT)
  Receive Date: 20201021
  Receipt Date: 20201105
  Transmission Date: 20210114
  Serious: Yes (Other)
  Sender: FDA-Public Use
  Company Number: IT-BAXTER-2020BAX021056

PATIENT
  Age: 22 Year
  Sex: Female

DRUGS (15)
  1. ADRIAMYCIN [Suspect]
     Active Substance: DOXORUBICIN HYDROCHLORIDE
     Indication: HODGKIN^S DISEASE STAGE IV
     Dosage: 4 CYCLES OF ABVD
     Route: 065
     Dates: start: 2007
  2. VINBLASTINE [Suspect]
     Active Substance: VINBLASTINE
     Indication: HODGKIN^S DISEASE STAGE IV
     Dosage: 4 CYCLES OF ABVD
     Route: 065
     Dates: start: 2007
  3. PREDNISOLONE. [Suspect]
     Active Substance: PREDNISOLONE
     Indication: HODGKIN^S DISEASE STAGE IV
     Dosage: 2 CYCLES OF BEACOPP
     Route: 065
  4. BRENTUXIMAB VEDOTIN [Suspect]
     Active Substance: BRENTUXIMAB VEDOTIN
     Indication: POSTOPERATIVE CARE
     Dosage: FROM 07/09 TO 06/10, 16 CYCLES WITHOUT SIGNIFICANT TOXICITY
     Route: 065
  5. BLEOMYCIN [Suspect]
     Active Substance: BLEOMYCIN SULFATE
     Dosage: 2 CYCLES OF BEACOPP
     Route: 065
  6. ETOPOSIDE. [Suspect]
     Active Substance: ETOPOSIDE
     Indication: HODGKIN^S DISEASE STAGE IV
     Dosage: 2 CYCLES OF BEACOPP
     Route: 065
  7. PROCARBAZINE [Suspect]
     Active Substance: PROCARBAZINE
     Indication: HODGKIN^S DISEASE STAGE IV
     Dosage: 2 CYCLES OF BEACOPP
     Route: 065
  8. BRENTUXIMAB VEDOTIN [Suspect]
     Active Substance: BRENTUXIMAB VEDOTIN
     Dosage: 09/10
     Route: 065
  9. BRENTUXIMAB VEDOTIN [Suspect]
     Active Substance: BRENTUXIMAB VEDOTIN
     Dosage: FROM 04/13 6 CYCLES
     Route: 065
  10. HOLOXAN [Suspect]
     Active Substance: IFOSFAMIDE
     Indication: SALVAGE THERAPY
     Route: 065
  11. BLEOMYCIN [Suspect]
     Active Substance: BLEOMYCIN SULFATE
     Indication: HODGKIN^S DISEASE STAGE IV
     Dosage: 4 CYCLES OF ABVD
     Route: 065
     Dates: start: 2007
  12. VINCRISTINE [Suspect]
     Active Substance: VINCRISTINE
     Indication: HODGKIN^S DISEASE STAGE IV
     Dosage: 2 CYCLES OF BEACOPP
     Route: 065
  13. ADRIAMYCIN [Suspect]
     Active Substance: DOXORUBICIN HYDROCHLORIDE
     Dosage: 2 CYCLES OF BEACOPP
     Route: 065
  14. DACARBAZINE. [Suspect]
     Active Substance: DACARBAZINE
     Indication: HODGKIN^S DISEASE STAGE IV
     Dosage: 4 CYCLES OF ABVD
     Route: 065
     Dates: start: 2007
  15. ENDOXAN BAXTER [Suspect]
     Active Substance: CYCLOPHOSPHAMIDE
     Indication: HODGKIN^S DISEASE STAGE IV
     Dosage: 2 CYCLES OF BEACOPP
     Route: 065

REACTIONS (2)
  - Drug ineffective [Unknown]
  - Disease progression [Unknown]
